FAERS Safety Report 11665020 (Version 1)
Quarter: 2015Q4

REPORT INFORMATION
  Report Type: Spontaneous
  Country: US (occurrence: US)
  Receive Date: 20151027
  Receipt Date: 20151027
  Transmission Date: 20160304
  Serious: No
  Sender: FDA-Public Use
  Company Number: US-BAYER-2015-450141

PATIENT
  Age: 91 Year
  Sex: Female
  Weight: 65.76 kg

DRUGS (11)
  1. AMITRIPTYLINE [Concomitant]
     Active Substance: AMITRIPTYLINE
  2. FISH OIL [Concomitant]
     Active Substance: FISH OIL
  3. MURO 128 [Concomitant]
     Active Substance: SODIUM CHLORIDE
  4. LUTEIN [Concomitant]
     Active Substance: LUTEIN
  5. MIRALAX [Suspect]
     Active Substance: POLYETHYLENE GLYCOL 3350
     Indication: CONSTIPATION
     Dosage: UNK
     Route: 048
  6. LISINOPRIL. [Concomitant]
     Active Substance: LISINOPRIL
  7. VITAMIN D [Concomitant]
     Active Substance: CHOLECALCIFEROL
  8. TRIAMTERENE. [Concomitant]
     Active Substance: TRIAMTERENE
  9. PRED MILD [Concomitant]
     Active Substance: PREDNISOLONE ACETATE
  10. METAMUCIL [Concomitant]
     Active Substance: PLANTAGO SEED
  11. ASPIRIN. [Concomitant]
     Active Substance: ASPIRIN

REACTIONS (1)
  - Product use issue [None]
